FAERS Safety Report 8267922-5 (Version None)
Quarter: 2012Q2

REPORT INFORMATION
  Report Type: 
  Country: None (occurrence: None)
  Receive Date: 20120403
  Receipt Date: 20120319
  Transmission Date: 20120825
  Serious: Yes (Death, Hospitalization)
  Sender: FDA-Public Use
  Company Number: CL-123-2010

PATIENT
  Age: 85 Year
  Sex: Female

DRUGS (11)
  1. CYANOCOBALAMINE IM [Concomitant]
  2. AZACTAM [Suspect]
     Indication: URINARY TRACT INFECTION
     Dates: start: 20100404
  3. TEAR SOLUTION [Concomitant]
  4. ASPIRIN [Concomitant]
  5. KETOTIFEN FUMARATE [Concomitant]
  6. HEPARIN [Concomitant]
  7. CIPRO [Suspect]
     Indication: URINARY TRACT INFECTION
     Dosage: 400 MG 12H IV
     Route: 042
     Dates: start: 20100404, end: 20100413
  8. POTASSIUM CHLORIDE [Concomitant]
  9. DORZOLAMINE OPHTHALMIC SOLUTION [Concomitant]
  10. CARVEDILOL [Concomitant]
  11. INSULIN ASPART [Concomitant]

REACTIONS (3)
  - LETHARGY [None]
  - MENTAL IMPAIRMENT [None]
  - ASTHENIA [None]
